FAERS Safety Report 5663109-0 (Version None)
Quarter: 2008Q1

REPORT INFORMATION
  Report Type: 
  Country: None (occurrence: None)
  Receive Date: 20080313
  Receipt Date: 20080305
  Transmission Date: 20080703
  Serious: Yes (Hospitalization)
  Sender: FDA-Public Use
  Company Number: A0715050A

PATIENT
  Age: 82 Year
  Sex: Female

DRUGS (7)
  1. ADVAIR DISKUS 100/50 [Suspect]
     Indication: DRUG USE FOR UNKNOWN INDICATION
     Route: 065
     Dates: start: 20070701, end: 20070801
  2. XOPENEX [Suspect]
     Indication: ASTHMA
     Route: 055
     Dates: start: 20070101, end: 20080118
  3. SYMBICORT [Suspect]
     Indication: DRUG USE FOR UNKNOWN INDICATION
     Dates: start: 20071001
  4. OXYGEN [Concomitant]
     Dosage: 1.5L AT NIGHT
  5. DIOVAN [Concomitant]
  6. SYNTHROID [Concomitant]
  7. PREDNISONE TAB [Concomitant]

REACTIONS (6)
  - BLOOD IRON DECREASED [None]
  - BLOOD POTASSIUM DECREASED [None]
  - BRONCHOSPASM [None]
  - DRUG HYPERSENSITIVITY [None]
  - DYSPNOEA [None]
  - VERTIGO [None]
